FAERS Safety Report 9711125 (Version 1)
Quarter: 2013Q4

REPORT INFORMATION
  Report Type: Spontaneous
  Country: US (occurrence: US)
  Receive Date: 20131126
  Receipt Date: 20131126
  Transmission Date: 20140711
  Serious: No
  Sender: FDA-Public Use
  Company Number: US-BRISTOL-MYERS SQUIBB COMPANY-19151232

PATIENT
  Age: 50 Year
  Sex: Female
  Weight: 69.84 kg

DRUGS (1)
  1. BYETTA [Suspect]
     Indication: TYPE 2 DIABETES MELLITUS
     Dosage: INTIAL :5 MCG,?DOSE INCREASED: 10 MCG
     Route: 058

REACTIONS (3)
  - Nausea [Unknown]
  - Weight increased [Unknown]
  - Drug dose omission [Unknown]
